FAERS Safety Report 5503905-3 (Version None)
Quarter: 2007Q4

REPORT INFORMATION
  Report Type: 
  Country: None (occurrence: None)
  Receive Date: 20071101
  Receipt Date: 20071023
  Transmission Date: 20080405
  Serious: Yes (Hospitalization)
  Sender: FDA-Public Use
  Company Number: BR-GILEAD-2006-0010798

PATIENT
  Age: 34 Year
  Sex: Female

DRUGS (2)
  1. HEPSERA [Suspect]
     Indication: HEPATITIS B
     Route: 048
     Dates: start: 20060928, end: 20061115
  2. LAMIVUDINE [Concomitant]
     Indication: HEPATITIS B
     Route: 065
     Dates: start: 20061101, end: 20061115

REACTIONS (2)
  - ABORTION INDUCED [None]
  - PREGNANCY [None]
